FAERS Safety Report 17730027 (Version 1)
Quarter: 2020Q2

REPORT INFORMATION
  Report Type: Spontaneous
  Country: CH (occurrence: CH)
  Receive Date: 20200430
  Receipt Date: 20200430
  Transmission Date: 20200714
  Serious: Yes (Other)
  Sender: FDA-Public Use
  Company Number: CH-ASTRAZENECA-2020SE57797

PATIENT
  Age: 28 Year
  Sex: Female

DRUGS (18)
  1. PARACETAMOL [Concomitant]
     Active Substance: ACETAMINOPHEN
     Indication: PYREXIA
     Route: 048
     Dates: start: 20200322, end: 20200329
  2. AKINETON [Concomitant]
     Active Substance: BIPERIDEN HYDROCHLORIDE
     Indication: DYSTONIA
     Dosage: 5.0MG UNKNOWN
     Route: 042
     Dates: start: 20200404, end: 20200405
  3. PRIMPERAN [Suspect]
     Active Substance: METOCLOPRAMIDE HYDROCHLORIDE
     Indication: NAUSEA
     Route: 042
     Dates: start: 20200404, end: 20200404
  4. PARACETAMOL [Concomitant]
     Active Substance: ACETAMINOPHEN
     Indication: RHINORRHOEA
     Route: 048
     Dates: start: 20200322, end: 20200329
  5. PARACETAMOL [Concomitant]
     Active Substance: ACETAMINOPHEN
     Indication: PYREXIA
     Route: 048
     Dates: start: 20200405, end: 20200405
  6. DESOREN [DESOGESTREL;ETHINYLESTRADIOL] [Concomitant]
     Route: 048
  7. PRIMPERAN [Suspect]
     Active Substance: METOCLOPRAMIDE HYDROCHLORIDE
     Indication: NAUSEA
     Dosage: EVERY DAY
     Route: 048
     Dates: start: 20200401, end: 20200404
  8. ZOFRAN [Suspect]
     Active Substance: ONDANSETRON HYDROCHLORIDE
     Indication: NAUSEA
     Dosage: 2-4 MG EVERY DAY
     Route: 048
     Dates: start: 20200403, end: 20200404
  9. NEXIUM [Suspect]
     Active Substance: ESOMEPRAZOLE MAGNESIUM
     Indication: ABDOMINAL PAIN UPPER
     Route: 048
     Dates: start: 20200401, end: 20200404
  10. PRIMPERAN [Suspect]
     Active Substance: METOCLOPRAMIDE HYDROCHLORIDE
     Indication: VOMITING
     Dosage: EVERY DAY
     Route: 030
     Dates: start: 20200401, end: 20200404
  11. PASPERTIN [METOCLOPRAMIDE HYDROCHLORIDE] [Suspect]
     Active Substance: METOCLOPRAMIDE HYDROCHLORIDE
     Indication: NAUSEA
     Dosage: 10.0MG ONCE/SINGLE ADMINISTRATION
     Route: 042
     Dates: start: 20200404, end: 20200404
  12. DIAZEPAM. [Concomitant]
     Active Substance: DIAZEPAM
     Indication: DYSTONIA
     Route: 030
     Dates: start: 20200405, end: 20200405
  13. PRIMPERAN [Suspect]
     Active Substance: METOCLOPRAMIDE HYDROCHLORIDE
     Indication: VOMITING
     Route: 042
     Dates: start: 20200404, end: 20200404
  14. NEXIUM I.V. [Suspect]
     Active Substance: ESOMEPRAZOLE SODIUM
     Indication: NAUSEA
     Route: 042
     Dates: start: 20200404, end: 20200405
  15. PRIMPERAN [Suspect]
     Active Substance: METOCLOPRAMIDE HYDROCHLORIDE
     Indication: NAUSEA
     Dosage: EVERY DAY
     Route: 030
     Dates: start: 20200401, end: 20200404
  16. PRIMPERAN [Suspect]
     Active Substance: METOCLOPRAMIDE HYDROCHLORIDE
     Indication: VOMITING
     Dosage: EVERY DAY
     Route: 048
     Dates: start: 20200401, end: 20200404
  17. ZOFRAN [Suspect]
     Active Substance: ONDANSETRON HYDROCHLORIDE
     Indication: NAUSEA
     Route: 042
     Dates: start: 20200404, end: 20200404
  18. PARACETAMOL [Concomitant]
     Active Substance: ACETAMINOPHEN
     Indication: RHINORRHOEA
     Route: 048
     Dates: start: 20200405, end: 20200405

REACTIONS (3)
  - Overdose [Recovered/Resolved]
  - Hepatocellular injury [Recovering/Resolving]
  - Drug-induced liver injury [Recovering/Resolving]

NARRATIVE: CASE EVENT DATE: 20200401
